FAERS Safety Report 5450681-9 (Version None)
Quarter: 2007Q3

REPORT INFORMATION
  Report Type: 
  Country: None (occurrence: None)
  Receive Date: 20070910
  Receipt Date: 20070828
  Transmission Date: 20080115
  Serious: Yes (Other)
  Sender: FDA-Public Use
  Company Number: TPA2007A01814

PATIENT
  Sex: Male
  Weight: 104.3273 kg

DRUGS (6)
  1. ROZEREM [Suspect]
     Dosage: ONCE, PER ORAL
     Route: 048
  2. METHADONE HCL [Suspect]
  3. HYDROCODONE BITARTRATE [Suspect]
  4. CYMBALTA [Suspect]
  5. ALEVE [Concomitant]
  6. OMEGA 3 FISH OIL (FISH OIL) [Concomitant]

REACTIONS (8)
  - AMNESIA [None]
  - BACK PAIN [None]
  - DRUG INTERACTION [None]
  - FEELING ABNORMAL [None]
  - IMPAIRED DRIVING ABILITY [None]
  - LEGAL PROBLEM [None]
  - MUSCLE SPASMS [None]
  - NEURALGIA [None]
